FAERS Safety Report 10243923 (Version 2)
Quarter: 2014Q2

REPORT INFORMATION
  Report Type: Spontaneous
  Country: US (occurrence: US)
  Receive Date: 20140618
  Receipt Date: 20140618
  Transmission Date: 20141212
  Serious: Yes (Other)
  Sender: FDA-Public Use
  Company Number: CHPA2013US014421

PATIENT
  Age: 78 Year
  Sex: Male

DRUGS (3)
  1. NODOZ [Suspect]
     Indication: PAIN IN EXTREMITY
     Dosage: 1 DF, PRN
     Route: 048
  2. NODOZ [Suspect]
     Indication: OFF LABEL USE
  3. MULTIVITAMINS, PLAIN [Concomitant]

REACTIONS (4)
  - Rash [Unknown]
  - Sinusitis [Recovering/Resolving]
  - Expired product administered [Unknown]
  - Nervousness [Recovered/Resolved]
